FAERS Safety Report 6659791-1 (Version None)
Quarter: 2010Q1

REPORT INFORMATION
  Report Type: 
  Country: None (occurrence: None)
  Receive Date: 20100325
  Receipt Date: 20100312
  Transmission Date: 20100710
  Serious: Yes (Life-Threatening, Hospitalization)
  Sender: FDA-Public Use
  Company Number: 230003M10AUS

PATIENT
  Age: 44 Year
  Sex: Female

DRUGS (3)
  1. REBIF [Suspect]
     Indication: RELAPSING-REMITTING MULTIPLE SCLEROSIS
     Dosage: 44 MCG, 3 IN 1 WEEKS, SUBCUTANEOUS
     Route: 058
     Dates: start: 20090601, end: 20100113
  2. FLUVOXAMINE MALEATE [Concomitant]
  3. HIPPREX (METHENAMINE HIPPURATE) [Concomitant]

REACTIONS (5)
  - CARDIAC FAILURE CONGESTIVE [None]
  - MALIGNANT HYPERTENSION [None]
  - MICROANGIOPATHIC HAEMOLYTIC ANAEMIA [None]
  - PLATELET COUNT DECREASED [None]
  - PULMONARY OEDEMA [None]
